FAERS Safety Report 13707364 (Version 1)
Quarter: 2017Q2

REPORT INFORMATION
  Report Type: Spontaneous
  Country: US (occurrence: US)
  Receive Date: 20170630
  Receipt Date: 20170630
  Transmission Date: 20170830
  Serious: Yes (Other)
  Sender: FDA-Public Use
  Company Number: US-LUNDBECK-DKLU2033460

PATIENT
  Age: 65 Year
  Sex: Female

DRUGS (2)
  1. NORTHERA [Suspect]
     Active Substance: DROXIDOPA
     Indication: AUTONOMIC NEUROPATHY
     Dosage: SCHEDULE C
     Route: 065
  2. NORTHERA [Suspect]
     Active Substance: DROXIDOPA
     Indication: ORTHOSTATIC HYPOTENSION

REACTIONS (14)
  - Hypotension [Unknown]
  - Dizziness [Unknown]
  - Decreased appetite [Unknown]
  - Loss of consciousness [Unknown]
  - Dehydration [Unknown]
  - Urinary tract infection [Unknown]
  - Nausea [Unknown]
  - Clostridium difficile infection [Unknown]
  - Impaired gastric emptying [Unknown]
  - Blood pressure decreased [Unknown]
  - Asthenia [Unknown]
  - Syncope [Unknown]
  - Heart rate decreased [Unknown]
  - Fatigue [Unknown]

NARRATIVE: CASE EVENT DATE: 20170417
